FAERS Safety Report 18236377 (Version 2)
Quarter: 2020Q3

REPORT INFORMATION
  Report Type: Report from Study
  Country: None (occurrence: US)
  Receive Date: 20200907
  Receipt Date: 20200915
  Transmission Date: 20201103
  Serious: Yes (Hospitalization)
  Sender: FDA-Public Use
  Company Number: BR-ABBVIE-20P-020-3554257-00

PATIENT
  Sex: Male

DRUGS (4)
  1. RISPERIDONE. [Suspect]
     Active Substance: RISPERIDONE
     Indication: SCHIZOPHRENIA
     Dosage: MORNING/NIGHT; DOSE REDUCED DUE TO TREMOR
     Route: 065
  2. RISPERIDONE. [Suspect]
     Active Substance: RISPERIDONE
     Indication: BIPOLAR DISORDER
     Dosage: ADMINISTERED AT NIGHT
     Route: 065
  3. DIVALPROEX [Suspect]
     Active Substance: DIVALPROEX SODIUM
     Indication: SCHIZOPHRENIA
     Dosage: DAILY DOSE 2 TABS, MORNING/NIGHT
     Route: 065
  4. DIVALPROEX [Suspect]
     Active Substance: DIVALPROEX SODIUM
     Indication: BIPOLAR DISORDER

REACTIONS (13)
  - Asymptomatic COVID-19 [Unknown]
  - Stress [Unknown]
  - Social problem [Unknown]
  - Memory impairment [Not Recovered/Not Resolved]
  - Hallucination, visual [Unknown]
  - Schizophrenia [Recovered/Resolved]
  - Bipolar disorder [Recovered/Resolved]
  - Tremor [Recovering/Resolving]
  - Schizophrenia [Recovered/Resolved]
  - Memory impairment [Recovered/Resolved]
  - Inappropriate schedule of product administration [Unknown]
  - Bipolar disorder [Recovered/Resolved]
  - Product use in unapproved indication [Unknown]

NARRATIVE: CASE EVENT DATE: 2020
